FAERS Safety Report 8372819-6 (Version None)
Quarter: 2012Q2

REPORT INFORMATION
  Report Type: 
  Country: None (occurrence: None)
  Receive Date: 20120521
  Receipt Date: 20120509
  Transmission Date: 20120825
  Serious: Yes (Other)
  Sender: FDA-Public Use
  Company Number: US-SANOFI-AVENTIS-2012SA033525

PATIENT
  Age: 72 Year
  Sex: Female
  Weight: 63 kg

DRUGS (4)
  1. LISINOPRIL [Concomitant]
  2. LABETALOL HCL [Concomitant]
  3. AMLODIPINE BESYLATE [Concomitant]
  4. PLAVIX [Suspect]
     Dates: start: 20120309

REACTIONS (1)
  - CHEST DISCOMFORT [None]
